FAERS Safety Report 10202393 (Version 1)
Quarter: 2014Q2

REPORT INFORMATION
  Report Type: Spontaneous
  Country: US (occurrence: US)
  Receive Date: 20140528
  Receipt Date: 20140528
  Transmission Date: 20141212
  Serious: Yes (Hospitalization)
  Sender: FDA-Public Use
  Company Number: US-B.I. PHARMACEUTICALS,INC./RIDGEFIELD-2014-BI-22926BP

PATIENT
  Sex: Male
  Weight: 91 kg

DRUGS (2)
  1. PRADAXA [Suspect]
     Indication: DEEP VEIN THROMBOSIS
     Route: 048
     Dates: start: 2010, end: 2012
  2. PRADAXA [Suspect]
     Indication: PULMONARY EMBOLISM

REACTIONS (1)
  - Accident [Unknown]
